FAERS Safety Report 5700685-3 (Version None)
Quarter: 2008Q2

REPORT INFORMATION
  Report Type: 
  Country: None (occurrence: None)
  Receive Date: 20080409
  Receipt Date: 20080409
  Transmission Date: 20081010
  Serious: Yes (Death)
  Sender: FDA-Public Use
  Company Number: None

PATIENT
  Age: 83 Year
  Sex: Female
  Weight: 53.5244 kg

DRUGS (2)
  1. SINGULAIR [Suspect]
     Indication: ASTHMA
     Dosage: 10 MG ONCE A DAY PO
     Route: 048
     Dates: start: 20080205, end: 20080314
  2. SINGULAIR [Suspect]
     Indication: CHRONIC OBSTRUCTIVE PULMONARY DISEASE
     Dosage: 10 MG ONCE A DAY PO
     Route: 048
     Dates: start: 20080205, end: 20080314

REACTIONS (8)
  - DISTURBANCE IN ATTENTION [None]
  - FATIGUE [None]
  - FEELING ABNORMAL [None]
  - MULTIPLE DRUG OVERDOSE INTENTIONAL [None]
  - MYOCARDIAL INFARCTION [None]
  - OEDEMA PERIPHERAL [None]
  - PAIN IN EXTREMITY [None]
  - SUICIDE ATTEMPT [None]
